FAERS Safety Report 21317791 (Version 2)
Quarter: 2022Q4

REPORT INFORMATION
  Report Type: Spontaneous
  Country: US (occurrence: US)
  Receive Date: 20220911
  Receipt Date: 20221110
  Transmission Date: 20230112
  Serious: No
  Sender: FDA-Public Use
  Company Number: US-SA-SAC20220824001118

PATIENT
  Age: 56 Year
  Sex: Male

DRUGS (1)
  1. CABLIVI [Suspect]
     Active Substance: CAPLACIZUMAB-YHDP
     Indication: Thrombotic microangiopathy
     Dosage: 11 MG QD
     Route: 058
     Dates: start: 20220802

REACTIONS (8)
  - Contusion [Unknown]
  - Snoring [Unknown]
  - Cough [Unknown]
  - Arthropod sting [Unknown]
  - Erythema [Unknown]
  - Weight increased [Unknown]
  - Fear of injection [Unknown]
  - Product use in unapproved indication [Unknown]

NARRATIVE: CASE EVENT DATE: 20220101
